FAERS Safety Report 6772698-4 (Version None)
Quarter: 2010Q2

REPORT INFORMATION
  Report Type: 
  Country: None (occurrence: None)
  Receive Date: 20100616
  Receipt Date: 20091019
  Transmission Date: 20101027
  Serious: No
  Sender: FDA-Public Use
  Company Number: US-ASTRAZENECA-2009SE21108

PATIENT
  Age: 75 Year
  Sex: Male
  Weight: 58.1 kg

DRUGS (3)
  1. PULMICORT FLEXHALER [Suspect]
     Indication: EMPHYSEMA
     Route: 055
     Dates: start: 20091001
  2. TRUSOPT [Concomitant]
     Indication: GLAUCOMA
  3. XALATAN [Concomitant]

REACTIONS (1)
  - ABNORMAL SENSATION IN EYE [None]
